FAERS Safety Report 24048230 (Version 1)
Quarter: 2024Q3

REPORT INFORMATION
  Report Type: Report from Study
  Country: MX (occurrence: MX)
  Receive Date: 20240704
  Receipt Date: 20240704
  Transmission Date: 20241016
  Serious: Yes (Hospitalization, Other)
  Sender: ELI LILLY AND CO
  Company Number: MX-Merck Healthcare KGaA-2024034349

PATIENT
  Age: 46 Year
  Sex: Female

DRUGS (2)
  1. CETUXIMAB [Suspect]
     Active Substance: CETUXIMAB
     Indication: Colorectal cancer
     Dosage: 400 MG, OTHER (ONCE IN 21 DAYS)
     Route: 042
     Dates: start: 20230801
  2. CETUXIMAB [Suspect]
     Active Substance: CETUXIMAB
     Dosage: UNK UNK, UNKNOWN
     Route: 042
     Dates: start: 20231201

REACTIONS (3)
  - Weight decreased [Unknown]
  - Liver operation [Recovered/Resolved]
  - Off label use [Unknown]

NARRATIVE: CASE EVENT DATE: 20240506
